FAERS Safety Report 4394781-3 (Version None)
Quarter: 2004Q3

REPORT INFORMATION
  Report Type: 
  Country: None (occurrence: None)
  Receive Date: 20040707
  Receipt Date: 20040629
  Transmission Date: 20050211
  Serious: No
  Sender: FDA-Public Use
  Company Number: 2004UW13509

PATIENT
  Sex: Female

DRUGS (1)
  1. NOLVADEX [Suspect]
     Indication: BREAST CANCER
     Dates: start: 19980101

REACTIONS (3)
  - HYSTERECTOMY [None]
  - OOPHORECTOMY [None]
  - OSTEOPOROSIS [None]
